FAERS Safety Report 15335940 (Version 1)
Quarter: 2018Q3

REPORT INFORMATION
  Report Type: Spontaneous
  Country: SI (occurrence: SI)
  Receive Date: 20180830
  Receipt Date: 20180830
  Transmission Date: 20181010
  Serious: Yes (Life-Threatening, Other)
  Sender: FDA-Public Use
  Company Number: PHHY2018SI084964

PATIENT
  Age: 79 Year
  Sex: Female

DRUGS (10)
  1. MAREVAN [Concomitant]
     Active Substance: WARFARIN SODIUM
     Indication: ATRIAL FIBRILLATION
     Dosage: 3 MG (ACCORDING TO THE SCHEME)
     Route: 048
  2. CANCOR [Concomitant]
     Indication: CARDIAC FAILURE
     Dosage: 0.63 MG (1,25; 1/2 TBL./DAY), QD
     Route: 048
  3. EXJADE [Suspect]
     Active Substance: DEFERASIROX
     Indication: IRON OVERLOAD
     Dosage: 1 DF, QOD ( (2 TBL. IN THE EVENINGS)
     Route: 048
     Dates: start: 20180712, end: 20180715
  4. NOLPAZA [Concomitant]
     Active Substance: PANTOPRAZOLE SODIUM
     Indication: PROPHYLAXIS
     Dosage: 20 MG (1 X/DAY 1 TBL), QD
     Route: 048
  5. DIUVER [Concomitant]
     Active Substance: TORSEMIDE
     Indication: CARDIAC FAILURE
     Dosage: 10 MG (1X/DAY 1 TBL.), QD
     Route: 048
  6. LECALPIN [Concomitant]
     Indication: HYPERTENSION
     Dosage: 10 MG  (1X/DAY 1 TBL. AS NECESSARY IF THE BLOOD PRESSURE IS HIGH)
     Route: 048
  7. FOLACIN [Concomitant]
     Active Substance: FOLIC ACID
     Indication: PRODUCT USED FOR UNKNOWN INDICATION
     Dosage: 5 MG (1 X/DAY 1 TABL), QD
     Route: 048
  8. PLIVIT D3 [Concomitant]
     Active Substance: CHOLECALCIFEROL
     Indication: PRODUCT USED FOR UNKNOWN INDICATION
     Dosage: 50 GTT (4000 I.E./ML; 50 GTT/WEEK), QW
     Route: 048
  9. APROVEL [Concomitant]
     Active Substance: IRBESARTAN
     Indication: HYPERTENSION
     Dosage: 300 MG (1X/DAY 1 TBL.), QD
     Route: 048
  10. ARANESP [Concomitant]
     Active Substance: DARBEPOETIN ALFA
     Indication: MYELODYSPLASTIC SYNDROME
     Dosage: 500 UG, (1X/ 3 WEEK ?  1 INJ)
     Route: 058

REACTIONS (2)
  - Urinary tract infection [Recovered/Resolved]
  - Renal impairment [Recovered/Resolved]

NARRATIVE: CASE EVENT DATE: 20180714
